FAERS Safety Report 6903674-6 (Version None)
Quarter: 2010Q3

REPORT INFORMATION
  Report Type: 
  Country: None (occurrence: None)
  Receive Date: 20100803
  Receipt Date: 20081107
  Transmission Date: 20110219
  Serious: Yes (Other)
  Sender: FDA-Public Use
  Company Number: US-PFIZER INC-2008027394

PATIENT
  Sex: Female
  Weight: 69.4 kg

DRUGS (13)
  1. LYRICA [Suspect]
     Indication: COMPLEX REGIONAL PAIN SYNDROME
     Route: 048
     Dates: start: 20070501
  2. LYRICA [Suspect]
     Indication: NEUROPATHY PERIPHERAL
  3. LYRICA [Suspect]
     Indication: PAIN
  4. NEURONTIN [Suspect]
     Indication: COMPLEX REGIONAL PAIN SYNDROME
  5. VALIUM [Concomitant]
  6. ALL OTHER THERAPEUTIC PRODUCTS [Concomitant]
  7. ZOLOFT [Concomitant]
  8. ZYRTEC [Concomitant]
  9. CATAPRES [Concomitant]
  10. HYDROXYZINE [Concomitant]
  11. PRILOSEC [Concomitant]
  12. MIDODRINE HYDROCHLORIDE [Concomitant]
  13. ATARAX [Concomitant]

REACTIONS (7)
  - DIASTOLIC DYSFUNCTION [None]
  - DRUG INEFFECTIVE [None]
  - GENERALISED OEDEMA [None]
  - PAIN [None]
  - PAIN IN EXTREMITY [None]
  - PULMONARY HYPERTENSION [None]
  - WEIGHT INCREASED [None]
